FAERS Safety Report 7282488-4 (Version None)
Quarter: 2011Q1

REPORT INFORMATION
  Report Type: 
  Country: None (occurrence: None)
  Receive Date: 20110209
  Receipt Date: 20110131
  Transmission Date: 20110831
  Serious: Yes (Hospitalization)
  Sender: FDA-Public Use
  Company Number: JP-GENZYME-THYM-1002293

PATIENT
  Sex: Male
  Weight: 54 kg

DRUGS (16)
  1. RILMAZAFONE HYDROCHLORIDE [Concomitant]
     Indication: INSOMNIA
     Dosage: UNK
     Route: 065
  2. THYMOGLOBULIN [Suspect]
     Indication: APLASTIC ANAEMIA
     Dosage: 125 MG, QD
     Route: 042
     Dates: start: 20100701, end: 20100705
  3. FILGRASTIM [Concomitant]
     Indication: APLASTIC ANAEMIA
     Dosage: UNK
     Route: 065
     Dates: start: 20101005, end: 20101216
  4. TEPRENONE [Concomitant]
     Indication: GASTRITIS PROPHYLAXIS
     Dosage: UNK
     Route: 065
  5. METHYLPREDNISOLONE SODIUM SUCCINATE [Concomitant]
     Indication: PREMEDICATION
     Dosage: UNK
     Route: 065
     Dates: start: 20100701, end: 20100705
  6. SULFAMETHOPRIM [Concomitant]
     Indication: ANTIBIOTIC PROPHYLAXIS
     Dosage: UNK
     Route: 065
     Dates: start: 20100921, end: 20101125
  7. ACETAMINOPHEN [Concomitant]
     Indication: HEADACHE
     Dosage: UNK
     Route: 065
     Dates: start: 20091224
  8. ACETAMINOPHEN [Concomitant]
     Indication: TOOTHACHE
  9. MAGNESIUM OXIDE [Concomitant]
     Indication: CONSTIPATION PROPHYLAXIS
     Dosage: UNK
     Route: 065
     Dates: start: 20100629, end: 20100831
  10. PREDNISOLONE [Concomitant]
     Indication: APLASTIC ANAEMIA
     Dosage: UNK
     Route: 065
     Dates: start: 20100706, end: 20100714
  11. LENOGRASTIM [Concomitant]
     Indication: APLASTIC ANAEMIA
     Dosage: UNK
     Route: 065
     Dates: start: 20100701, end: 20100921
  12. METENOLONE ACETATE [Concomitant]
     Indication: APLASTIC ANAEMIA
     Dosage: UNK
     Route: 065
     Dates: start: 20100104, end: 20100707
  13. BIFIDOBACTERIUM BIFIDUM [Concomitant]
     Indication: PROPHYLAXIS AGAINST DIARRHOEA
     Dosage: UNK
     Route: 065
  14. ZOPICLONE [Concomitant]
     Indication: INSOMNIA
     Dosage: UNK
     Route: 065
  15. CYCLOSPORINE [Concomitant]
     Indication: APLASTIC ANAEMIA
     Dosage: UNK
     Route: 065
     Dates: start: 20100629
  16. SULFAMETHOPRIM [Concomitant]
     Indication: ANTIFUNGAL PROPHYLAXIS

REACTIONS (13)
  - LIVER DISORDER [None]
  - FEBRILE NEUTROPENIA [None]
  - HYPERTENSION [None]
  - ABDOMINAL PAIN UPPER [None]
  - HYPOAESTHESIA [None]
  - UPPER RESPIRATORY TRACT INFLAMMATION [None]
  - OEDEMA [None]
  - MALAISE [None]
  - NASOPHARYNGITIS [None]
  - CYTOMEGALOVIRUS TEST POSITIVE [None]
  - HEPATIC ENZYME INCREASED [None]
  - CANDIDA TEST POSITIVE [None]
  - HYPOKALAEMIA [None]
